FAERS Safety Report 6112532-9 (Version None)
Quarter: 2009Q1

REPORT INFORMATION
  Report Type: 
  Country: None (occurrence: None)
  Receive Date: 20090312
  Receipt Date: 20090310
  Transmission Date: 20090719
  Serious: Yes (Other)
  Sender: FDA-Public Use
  Company Number: US-BRISTOL-MYERS SQUIBB COMPANY-14538540

PATIENT
  Age: 83 Year
  Sex: Female

DRUGS (3)
  1. COUMADIN [Suspect]
  2. PLAVIX [Suspect]
  3. ASPIRIN [Suspect]

REACTIONS (1)
  - STEVENS-JOHNSON SYNDROME [None]
